FAERS Safety Report 5782547-9 (Version None)
Quarter: 2008Q2

REPORT INFORMATION
  Report Type: 
  Country: None (occurrence: None)
  Receive Date: 20080623
  Receipt Date: 20080611
  Transmission Date: 20081010
  Serious: Yes (Other)
  Sender: FDA-Public Use
  Company Number: CA-PFIZER INC-2008049373

PATIENT
  Age: 48 Year
  Sex: Female
  Weight: 81.818 kg

DRUGS (6)
  1. CHANTIX [Suspect]
  2. AMOXICILLIN [Concomitant]
  3. EFFEXOR [Concomitant]
  4. MORPHINE [Concomitant]
  5. PERCOCET [Concomitant]
  6. SYNTHROID [Concomitant]

REACTIONS (10)
  - AGGRESSION [None]
  - ANGER [None]
  - DRUG ABUSE [None]
  - FATIGUE [None]
  - FEELING ABNORMAL [None]
  - FEELING OF DESPAIR [None]
  - NAUSEA [None]
  - PAROSMIA [None]
  - SUICIDAL IDEATION [None]
  - UNRESPONSIVE TO STIMULI [None]
